FAERS Safety Report 8558240-6 (Version None)
Quarter: 2012Q3

REPORT INFORMATION
  Report Type: 
  Country: None (occurrence: None)
  Receive Date: 20120801
  Receipt Date: 20120723
  Transmission Date: 20120928
  Serious: Yes (Other)
  Sender: FDA-Public Use
  Company Number: CA-JNJFOC-20120509817

PATIENT
  Sex: Female
  Weight: 53.7 kg

DRUGS (3)
  1. REMICADE [Suspect]
     Indication: CROHN'S DISEASE
     Route: 042
     Dates: start: 20110506
  2. REMICADE [Suspect]
     Route: 042
     Dates: start: 20120307
  3. MACROBID [Concomitant]
     Indication: URINARY TRACT INFECTION
     Route: 065

REACTIONS (8)
  - MUSCULOSKELETAL PAIN [None]
  - URINARY TRACT INFECTION [None]
  - CHEST PAIN [None]
  - BACK PAIN [None]
  - ARTHRALGIA [None]
  - HYPERTHYROIDISM [None]
  - ABDOMINAL PAIN [None]
  - DYSPNOEA [None]
